FAERS Safety Report 5313532-9 (Version None)
Quarter: 2007Q2

REPORT INFORMATION
  Report Type: 
  Country: None (occurrence: None)
  Receive Date: 20070501
  Receipt Date: 20060918
  Transmission Date: 20071010
  Serious: No
  Sender: FDA-Public Use
  Company Number: 2006UW18246

PATIENT
  Age: 15 Year
  Sex: Female

DRUGS (1)
  1. ENTOCORT EC [Suspect]
     Indication: INFLAMMATORY BOWEL DISEASE
     Route: 048
     Dates: start: 20060801

REACTIONS (3)
  - ARTHRALGIA [None]
  - MOUTH ULCERATION [None]
  - MYALGIA [None]
